FAERS Safety Report 8267805-0 (Version None)
Quarter: 2012Q2

REPORT INFORMATION
  Report Type: 
  Country: None (occurrence: None)
  Receive Date: 20120405
  Receipt Date: 20120405
  Transmission Date: 20120825
  Serious: Yes (Hospitalization)
  Sender: FDA-Public Use
  Company Number: None

PATIENT
  Sex: Female
  Weight: 41 kg

DRUGS (2)
  1. TAXOL [Suspect]
     Dosage: 231 MG
  2. CISPLATIN [Suspect]
     Dosage: 66 MG

REACTIONS (10)
  - BACK PAIN [None]
  - NAUSEA [None]
  - VOMITING [None]
  - CHILLS [None]
  - BLOOD CULTURE POSITIVE [None]
  - ANAEMIA [None]
  - PYREXIA [None]
  - TREATMENT NONCOMPLIANCE [None]
  - PAIN IN EXTREMITY [None]
  - BLOOD CREATININE INCREASED [None]
